FAERS Safety Report 9632211 (Version 2)
Quarter: 2014Q1

REPORT INFORMATION
  Report Type: Spontaneous
  Country: NO (occurrence: NO)
  Receive Date: 20131018
  Receipt Date: 20140203
  Transmission Date: 20141002
  Serious: Yes (Hospitalization)
  Sender: FDA-Public Use
  Company Number: NO-JNJFOC-20131007640

PATIENT
  Sex: Male

DRUGS (3)
  1. SIMPONI [Suspect]
     Indication: ANKYLOSING SPONDYLITIS
     Route: 058
     Dates: start: 2010, end: 2012
  2. REMICADE [Suspect]
     Indication: ANKYLOSING SPONDYLITIS
     Route: 042
     Dates: start: 2005, end: 2010
  3. METHOTREXAT [Suspect]
     Indication: ANKYLOSING SPONDYLITIS
     Route: 065
     Dates: start: 2006, end: 2006

REACTIONS (5)
  - Pulmonary embolism [Recovered/Resolved]
  - Tubulointerstitial nephritis [Unknown]
  - Pulmonary embolism [Recovering/Resolving]
  - Haematuria [Unknown]
  - Blood creatine phosphokinase increased [Unknown]
